FAERS Safety Report 5083184-4 (Version None)
Quarter: 2006Q3

REPORT INFORMATION
  Report Type: 
  Country: None (occurrence: None)
  Receive Date: 20060818
  Receipt Date: 20050223
  Transmission Date: 20061208
  Serious: Yes (Hospitalization)
  Sender: FDA-Public Use
  Company Number: PHHO2005JP03407

PATIENT
  Age: 73 Year
  Sex: Female
  Weight: 56 kg

DRUGS (5)
  1. LOCHOL [Suspect]
     Indication: HYPERCHOLESTEROLAEMIA
     Dosage: 20 MG DAILY
     Route: 048
     Dates: start: 20001218, end: 20010702
  2. LOCHOL [Suspect]
     Dosage: 40 MG DAILY
     Route: 048
     Dates: start: 20010703
  3. LANIRAPID [Suspect]
     Indication: CARDIAC FAILURE
     Dosage: 0.1 MG, QD
     Route: 048
     Dates: start: 20030804
  4. BASEN [Concomitant]
     Indication: DIABETES MELLITUS
  5. PENFILL N [Concomitant]
     Indication: DIABETES MELLITUS

REACTIONS (7)
  - AORTA HYPOPLASIA [None]
  - CARDIAC FAILURE [None]
  - CARDIOMEGALY [None]
  - CONGESTIVE CARDIOMYOPATHY [None]
  - DYSPNOEA [None]
  - ELECTROCARDIOGRAM ST SEGMENT DEPRESSION [None]
  - OEDEMA PERIPHERAL [None]
